FAERS Safety Report 10643862 (Version 4)
Quarter: 2015Q3

REPORT INFORMATION
  Report Type: Spontaneous
  Country: US (occurrence: US)
  Receive Date: 20141210
  Receipt Date: 20150701
  Transmission Date: 20151125
  Serious: Yes (Other)
  Sender: FDA-Public Use
  Company Number: US-PFIZER INC-2014338916

PATIENT
  Age: 55 Year
  Sex: Female
  Weight: 120.18 kg

DRUGS (13)
  1. NORTRIPTYLINE [Concomitant]
     Active Substance: NORTRIPTYLINE
     Dosage: 75 MG, 1X/DAY
     Dates: start: 2000, end: 201505
  2. LYRICA [Suspect]
     Active Substance: PREGABALIN
     Indication: FIBROMYALGIA
     Dosage: (300MG 2 A DAY OR 150MG 4 A DAY)
     Dates: start: 201503
  3. METFORMIN [Concomitant]
     Active Substance: METFORMIN HYDROCHLORIDE
     Indication: DIABETES MELLITUS
     Dosage: 500 MG, 2X/DAY
     Dates: start: 2013
  4. LOXAPINE. [Concomitant]
     Active Substance: LOXAPINE
     Dosage: 30 MG, 1X/DAY
     Dates: start: 2004, end: 201505
  5. SIMVASTATIN. [Concomitant]
     Active Substance: SIMVASTATIN
     Indication: BLOOD CHOLESTEROL ABNORMAL
     Dosage: 20 MG, 1X/DAY
     Dates: start: 2013
  6. MONTELUKAST [Concomitant]
     Active Substance: MONTELUKAST SODIUM
     Dosage: 10 MG, 1X/DAY
     Dates: start: 2004
  7. OMEPRAZOLE. [Concomitant]
     Active Substance: OMEPRAZOLE
     Indication: VOMITING
     Dosage: 20 MG, 1X/DAY
     Dates: start: 201505, end: 201505
  8. FUROSEMIDE. [Concomitant]
     Active Substance: FUROSEMIDE
     Indication: DIURETIC THERAPY
     Dosage: 40 MG, 1X/DAY
     Dates: start: 1993
  9. CITALOPRAM [Concomitant]
     Active Substance: CITALOPRAM HYDROBROMIDE
     Dosage: 60 MG, DAILY (40MG ONE AND HALF A DAY)
     Dates: start: 2000, end: 201505
  10. LYRICA [Suspect]
     Active Substance: PREGABALIN
     Indication: DIABETIC NEUROPATHY
     Dosage: 300 MG CAPSULE IN MORNING AND 300 MG CAPSULE IN AFTERNOON
     Dates: start: 201411
  11. MELOXICAM. [Concomitant]
     Active Substance: MELOXICAM
     Dosage: 15 MG, 1X/DAY
     Dates: start: 201410
  12. MELOXICAM. [Concomitant]
     Active Substance: MELOXICAM
     Dosage: UNK
     Dates: start: 201503, end: 201504
  13. DICYCLOMINE [Concomitant]
     Active Substance: DICYCLOMINE HYDROCHLORIDE
     Indication: GASTROINTESTINAL PAIN
     Dosage: 60 MG, DAILY
     Dates: start: 2013

REACTIONS (3)
  - Weight increased [Recovered/Resolved]
  - Activities of daily living impaired [Unknown]
  - Abasia [Unknown]

NARRATIVE: CASE EVENT DATE: 201411
